FAERS Safety Report 15393089 (Version 1)
Quarter: 2018Q3

REPORT INFORMATION
  Report Type: Spontaneous
  Country: US (occurrence: US)
  Receive Date: 20180917
  Receipt Date: 20180917
  Transmission Date: 20181010
  Serious: Yes (Other)
  Sender: FDA-Public Use
  Company Number: US-BRISTOL-MYERS SQUIBB COMPANY-BMS-2018-084457

PATIENT
  Sex: Female

DRUGS (1)
  1. ELIQUIS [Suspect]
     Active Substance: APIXABAN
     Indication: CEREBROVASCULAR ACCIDENT PROPHYLAXIS
     Dosage: UNK
     Route: 065
     Dates: start: 2015

REACTIONS (4)
  - Animal bite [Unknown]
  - Haemorrhage [Recovered/Resolved]
  - Wound haemorrhage [Recovered/Resolved]
  - Brain neoplasm benign [Unknown]

NARRATIVE: CASE EVENT DATE: 201712
